FAERS Safety Report 24090928 (Version 3)
Quarter: 2025Q2

REPORT INFORMATION
  Report Type: Spontaneous
  Country: FR (occurrence: FR)
  Receive Date: 20240715
  Receipt Date: 20250623
  Transmission Date: 20250717
  Serious: Yes (Hospitalization, Other)
  Sender: MYLAN
  Company Number: FR-STADA-01262458

PATIENT
  Age: 33 Year
  Sex: Female

DRUGS (8)
  1. TRAMADOL [Suspect]
     Active Substance: TRAMADOL
     Indication: Product used for unknown indication
     Dosage: 1300 MG, QD (7 TRAMADOL LP 100 MG TABLETS (POSSIBLE TEVA DRUG) IN THE MORNING AND 6 IN THE EVENING
  2. TRAMADOL [Suspect]
     Active Substance: TRAMADOL
     Dosage: 1300 MG, QD (7 TRAMADOL LP 100 MG TABLETS (POSSIBLE TEVA DRUG) IN THE MORNING AND 6 IN THE EVENING
  3. TRAMADOL [Suspect]
     Active Substance: TRAMADOL
     Dosage: 1300 MG, QD (7 TRAMADOL LP 100 MG TABLETS (POSSIBLE TEVA DRUG) IN THE MORNING AND 6 IN THE EVENING
     Route: 048
  4. TRAMADOL [Suspect]
     Active Substance: TRAMADOL
     Dosage: 1300 MG, QD (7 TRAMADOL LP 100 MG TABLETS (POSSIBLE TEVA DRUG) IN THE MORNING AND 6 IN THE EVENING
     Route: 048
  5. TRAMADOL [Suspect]
     Active Substance: TRAMADOL
     Dosage: 1100 MILLIGRAM, QD (~2 TABLETS PER DAY)
  6. TRAMADOL [Suspect]
     Active Substance: TRAMADOL
     Dosage: 1100 MILLIGRAM, QD (~2 TABLETS PER DAY)
  7. TRAMADOL [Suspect]
     Active Substance: TRAMADOL
     Dosage: 1100 MILLIGRAM, QD (~2 TABLETS PER DAY)
     Route: 065
  8. TRAMADOL [Suspect]
     Active Substance: TRAMADOL
     Dosage: 1100 MILLIGRAM, QD (~2 TABLETS PER DAY)
     Route: 065

REACTIONS (6)
  - Drug use disorder [Unknown]
  - Drug withdrawal convulsions [Unknown]
  - Drug dependence [Unknown]
  - Affective disorder [Unknown]
  - Prescribed overdose [Unknown]
  - Off label use [Unknown]
